FAERS Safety Report 7072078-0 (Version None)
Quarter: 2010Q4

REPORT INFORMATION
  Report Type: 
  Country: None (occurrence: None)
  Receive Date: 20101029
  Receipt Date: 20101019
  Transmission Date: 20110411
  Serious: Yes (Hospitalization, Other)
  Sender: FDA-Public Use
  Company Number: US-NOVOPROD-316411

PATIENT
  Sex: Female

DRUGS (1)
  1. VICTOZA [Suspect]
     Indication: DIABETES MELLITUS
     Dosage: UNK
     Dates: start: 20100701

REACTIONS (4)
  - ABDOMINAL PAIN [None]
  - FATIGUE [None]
  - PANCREATIC CARCINOMA [None]
  - WEIGHT DECREASED [None]
